FAERS Safety Report 4389145-2 (Version None)
Quarter: 2004Q3

REPORT INFORMATION
  Report Type: 
  Country: None (occurrence: None)
  Receive Date: 20040701
  Receipt Date: 20040701
  Transmission Date: 20050211
  Serious: Yes (Hospitalization)
  Sender: FDA-Public Use
  Company Number: None

PATIENT
  Sex: Male
  Weight: 131 kg

DRUGS (3)
  1. LITHIUM CARBONATE [Suspect]
     Indication: BIPOLAR DISORDER
     Dosage: 1200 MG PO QD [CHRONIC LONG-TERM]
     Route: 048
  2. LISINOPRIL [Concomitant]
  3. NAPROXEN [Concomitant]

REACTIONS (2)
  - DEHYDRATION [None]
  - DRUG LEVEL INCREASED [None]
